FAERS Safety Report 17473388 (Version 1)
Quarter: 2020Q1

REPORT INFORMATION
  Report Type: Report from Study
  Country: BR (occurrence: BR)
  Receive Date: 20200228
  Receipt Date: 20200228
  Transmission Date: 20200409
  Serious: Yes (Disabling, Other)
  Sender: FDA-Public Use
  Company Number: BR-JNJFOC-20160603942

PATIENT
  Sex: Male

DRUGS (6)
  1. STELARA [Suspect]
     Active Substance: USTEKINUMAB
     Indication: PSORIASIS
     Route: 058
     Dates: start: 20150805
  2. ERANZ [Concomitant]
     Active Substance: DONEPEZIL HYDROCHLORIDE
     Route: 065
  3. ANCORON [Concomitant]
     Active Substance: AMIODARONE HYDROCHLORIDE
     Route: 065
  4. STALEVO [Concomitant]
     Active Substance: CARBIDOPA\ENTACAPONE\LEVODOPA
     Route: 065
  5. AZUKON [Concomitant]
     Active Substance: GLICLAZIDE
     Route: 065
  6. NOLOTIL [Concomitant]
     Route: 065

REACTIONS (4)
  - Nervous system disorder [Recovered/Resolved]
  - Loss of personal independence in daily activities [Unknown]
  - Communication disorder [Recovered/Resolved]
  - Inappropriate schedule of product administration [Unknown]
